FAERS Safety Report 8531273-1 (Version None)
Quarter: 2012Q3

REPORT INFORMATION
  Report Type: 
  Country: None (occurrence: None)
  Receive Date: 20120723
  Receipt Date: 20120713
  Transmission Date: 20120928
  Serious: Yes (Hospitalization, Other)
  Sender: FDA-Public Use
  Company Number: BR-BAYER-2012-070877

PATIENT
  Age: 65 Year
  Sex: Female
  Weight: 55 kg

DRUGS (4)
  1. SORAFENIB (RAF KINASE INHIBITOR) [Suspect]
     Dosage: 400 MG, BID
     Route: 048
     Dates: start: 20120620
  2. OMEPRAZOLE [Concomitant]
     Route: 048
  3. SORAFENIB (RAF KINASE INHIBITOR) [Suspect]
     Indication: HEPATIC NEOPLASM MALIGNANT
     Dosage: 400 MG, BID
     Route: 048
     Dates: start: 20120101, end: 20120522
  4. AMLODIPINE [Concomitant]
     Route: 048

REACTIONS (7)
  - DECREASED APPETITE [None]
  - METASTASES TO SPINE [None]
  - BACK PAIN [None]
  - BLOOD GLUCOSE DECREASED [None]
  - FLUID RETENTION [None]
  - HYPERSOMNIA [None]
  - DIZZINESS [None]
